FAERS Safety Report 10716658 (Version 2)
Quarter: 2015Q1

REPORT INFORMATION
  Report Type: Spontaneous
  Country: US (occurrence: US)
  Receive Date: 20150116
  Receipt Date: 20150205
  Transmission Date: 20150721
  Serious: Yes (Other)
  Sender: FDA-Public Use
  Company Number: US-BAYER-2015-006390

PATIENT
  Age: 41 Year
  Sex: Female

DRUGS (2)
  1. MIRENA [Suspect]
     Active Substance: LEVONORGESTREL
     Indication: CONTRACEPTION
  2. MIRENA [Suspect]
     Active Substance: LEVONORGESTREL
     Indication: OVARIAN CYST
     Dosage: 20 MCG/24HR, CONT
     Route: 015
     Dates: start: 20141218, end: 201501

REACTIONS (6)
  - Heart rate irregular [None]
  - Insomnia [Not Recovered/Not Resolved]
  - Hypertension [None]
  - Tremor [None]
  - Genital haemorrhage [Not Recovered/Not Resolved]
  - Abdominal pain lower [None]

NARRATIVE: CASE EVENT DATE: 20141218
